FAERS Safety Report 9455688 (Version 2)
Quarter: 2013Q3

REPORT INFORMATION
  Report Type: Spontaneous
  Country: US (occurrence: US)
  Receive Date: 20130813
  Receipt Date: 20130820
  Transmission Date: 20140515
  Serious: Yes (Death)
  Sender: FDA-Public Use
  Company Number: US-PFIZER INC-2013230903

PATIENT
  Age: 47 Year
  Sex: Male
  Weight: 162 kg

DRUGS (10)
  1. PROCARDIA XL [Suspect]
     Indication: HYPERTENSION
     Dosage: 60 MG, DAILY
     Dates: start: 20100114, end: 20120406
  2. PROCARDIA XL [Suspect]
     Dosage: 90 MG, DAILY
     Dates: start: 20120406
  3. LISINOPRIL [Concomitant]
     Dosage: UNK
  4. HUMULIN R [Concomitant]
     Indication: TYPE 2 DIABETES MELLITUS
     Dosage: UNK
  5. LANTUS [Concomitant]
     Indication: TYPE 2 DIABETES MELLITUS
     Dosage: UNK
  6. METOPROLOL [Concomitant]
     Indication: HYPERTENSION
     Dosage: UNK
  7. CLOPIDOGREL BISULFATE [Concomitant]
     Dosage: UNK
  8. ASPIRIN [Concomitant]
     Dosage: 81 MG, UNK
  9. FUROSEMIDE [Concomitant]
     Dosage: 40 MG, UNK
  10. CRESTOR [Concomitant]
     Dosage: 20 MG, UNK

REACTIONS (1)
  - Drug hypersensitivity [Fatal]
